FAERS Safety Report 13944367 (Version 1)
Quarter: 2017Q3

REPORT INFORMATION
  Report Type: Spontaneous
  Country: US (occurrence: US)
  Receive Date: 20170907
  Receipt Date: 20170907
  Transmission Date: 20171128
  Serious: No
  Sender: FDA-Public Use
  Company Number: US-ROCHE-1343064

PATIENT
  Sex: Male

DRUGS (1)
  1. RITUXAN [Suspect]
     Active Substance: RITUXIMAB
     Indication: B-CELL LYMPHOMA
     Route: 065

REACTIONS (12)
  - Diarrhoea [Unknown]
  - Chest discomfort [Unknown]
  - Lethargy [Unknown]
  - Flushing [Unknown]
  - Pain [Unknown]
  - Headache [Unknown]
  - Pollakiuria [Unknown]
  - Fatigue [Unknown]
  - Blood pressure increased [Unknown]
  - Sinusitis [Unknown]
  - Anxiety [Unknown]
  - Palpitations [Unknown]
